FAERS Safety Report 6768560-3 (Version None)
Quarter: 2010Q2

REPORT INFORMATION
  Report Type: 
  Country: None (occurrence: None)
  Receive Date: 20100614
  Receipt Date: 20100602
  Transmission Date: 20101027
  Serious: Yes (Hospitalization, Other)
  Sender: FDA-Public Use
  Company Number: FR-PFIZER INC-2010069671

PATIENT
  Age: 65 Year

DRUGS (1)
  1. SUTENT [Suspect]
     Dosage: 50 MG, UNK

REACTIONS (3)
  - BLOOD PRESSURE INADEQUATELY CONTROLLED [None]
  - NEPHROTIC SYNDROME [None]
  - YELLOW SKIN [None]
